FAERS Safety Report 9734034 (Version 6)
Quarter: 2014Q2

REPORT INFORMATION
  Report Type: Spontaneous
  Country: CA (occurrence: CA)
  Receive Date: 20131205
  Receipt Date: 20140526
  Transmission Date: 20141212
  Serious: Yes (Other)
  Sender: FDA-Public Use
  Company Number: CA-009507513-1312CAN002404

PATIENT
  Age: 52 Year
  Sex: Male

DRUGS (5)
  1. VICTRELIS [Suspect]
     Indication: CHRONIC HEPATITIS C
     Dosage: 800 MG, 3 IN 1 D
     Route: 048
     Dates: start: 20131024
  2. PEGASYS [Suspect]
     Indication: CHRONIC HEPATITIS C
     Dosage: 180 MICROGRAM, 1 IN 1 WK, 0.5 ML PRE-FILLED SYRINGE
     Route: 058
     Dates: start: 20130926, end: 20131206
  3. COPEGUS [Suspect]
     Indication: CHRONIC HEPATITIS C
     Dosage: 1400 MG, QD
     Route: 048
     Dates: start: 20130926
  4. PERCOCET [Concomitant]
     Indication: PAIN
     Dosage: FREQUENCY:2 , FREQUENCY TIME:4
     Route: 048
  5. OXYCODONE [Concomitant]
     Indication: PAIN
     Dosage: OXYCODONE IMMEDIATE RELEASE 2 DF, AS REQUIRED
     Route: 048

REACTIONS (12)
  - Back pain [Not Recovered/Not Resolved]
  - Abdominal pain upper [Not Recovered/Not Resolved]
  - Fatigue [Not Recovered/Not Resolved]
  - Hyperhidrosis [Not Recovered/Not Resolved]
  - Medication residue present [Not Recovered/Not Resolved]
  - Hypometabolism [Not Recovered/Not Resolved]
  - Mood altered [Not Recovered/Not Resolved]
  - Neck pain [Not Recovered/Not Resolved]
  - Injection site hypersensitivity [Not Recovered/Not Resolved]
  - Injection site pain [Not Recovered/Not Resolved]
  - Product quality issue [Unknown]
  - Injection site reaction [Not Recovered/Not Resolved]
